FAERS Safety Report 18898341 (Version 1)
Quarter: 2021Q1

REPORT INFORMATION
  Report Type: Spontaneous
  Country: US (occurrence: US)
  Receive Date: 20210216
  Receipt Date: 20210216
  Transmission Date: 20210420
  Serious: No
  Sender: FDA-Public Use
  Company Number: US-SA-2021SA052244

PATIENT
  Sex: Male

DRUGS (1)
  1. DUPIXENT [Suspect]
     Active Substance: DUPILUMAB
     Dosage: 1 SYRINGE (300 MG)
     Route: 058

REACTIONS (3)
  - Insomnia [Unknown]
  - Abdominal pain upper [Unknown]
  - Pain [Unknown]
